FAERS Safety Report 13071654 (Version 5)
Quarter: 2024Q2

REPORT INFORMATION
  Report Type: Spontaneous
  Country: GB (occurrence: GB)
  Receive Date: 20161229
  Receipt Date: 20240408
  Transmission Date: 20240716
  Serious: Yes (Hospitalization, Other)
  Sender: FDA-Public Use
  Company Number: GB-MLMSERVICE-20161221-0547519-1

PATIENT
  Age: 40 Year
  Sex: Male

DRUGS (11)
  1. METHYLPREDNISOLONE SODIUM SUCCINATE [Suspect]
     Active Substance: METHYLPREDNISOLONE SODIUM SUCCINATE
     Indication: Immunosuppressant drug therapy
     Dosage: 500 MG X 3 DOSES, INTRAVENOUS PLUSE
     Route: 042
  2. THYMOGLOBULIN [Suspect]
     Active Substance: LAPINE T-LYMPHOCYTE IMMUNE GLOBULIN
     Indication: Immunosuppressant drug therapy
     Dosage: 5 MG/KG, TOTAL DOSE: 550 MG
  3. THYMOGLOBULIN [Suspect]
     Active Substance: LAPINE T-LYMPHOCYTE IMMUNE GLOBULIN
     Dosage: 7 MG/KG, TOTAL DOSE: 700 MG
  4. TACROLIMUS [Suspect]
     Active Substance: TACROLIMUS
     Indication: Immunosuppressant drug therapy
     Dosage: TARGET TROUGH LEVEL 10-12 NG/ML
  5. TACROLIMUS [Suspect]
     Active Substance: TACROLIMUS
     Dosage: TARGET TROUGH LEVEL 8-10 NG/ML
  6. MYCOPHENOLATE MOFETIL [Suspect]
     Active Substance: MYCOPHENOLATE MOFETIL
     Indication: Immunosuppressant drug therapy
     Dosage: 500 MG, 2X/DAY
  7. MYCOPHENOLATE MOFETIL [Suspect]
     Active Substance: MYCOPHENOLATE MOFETIL
     Dosage: 750 MG, 2X/DAY
  8. MYCOPHENOLATE MOFETIL [Suspect]
     Active Substance: MYCOPHENOLATE MOFETIL
     Dosage: 250 MG, 2X/DAY
  9. PREDNISONE [Suspect]
     Active Substance: PREDNISONE
     Indication: Immunosuppressant drug therapy
     Dosage: 15 MG, 1X/DAY
  10. PREDNISONE [Suspect]
     Active Substance: PREDNISONE
     Dosage: INCREASED TO 20 MG OD POST-METHYL PREDNISONE PULSE
  11. PREDNISONE [Suspect]
     Active Substance: PREDNISONE
     Dosage: 40 MG, 1X/DAY

REACTIONS (1)
  - Mycobacterium chelonae infection [Recovering/Resolving]
